FAERS Safety Report 19026095 (Version 1)
Quarter: 2021Q1

REPORT INFORMATION
  Report Type: Spontaneous
  Country: US (occurrence: US)
  Receive Date: 20210318
  Receipt Date: 20210318
  Transmission Date: 20210420
  Serious: No
  Sender: FDA-Public Use
  Company Number: None

PATIENT
  Age: 66 Year
  Sex: Female
  Weight: 65.77 kg

DRUGS (1)
  1. PROAIR HFA [Suspect]
     Active Substance: ALBUTEROL SULFATE

REACTIONS (13)
  - Condition aggravated [None]
  - Dyspnoea [None]
  - Dysphagia [None]
  - Burning sensation [None]
  - Myalgia [None]
  - Product substitution issue [None]
  - Oropharyngeal pain [None]
  - Cough [None]
  - Choking [None]
  - Chest discomfort [None]
  - Rhinorrhoea [None]
  - Dysphonia [None]
  - Pulmonary pain [None]

NARRATIVE: CASE EVENT DATE: 20210225
